FAERS Safety Report 14906429 (Version 2)
Quarter: 2018Q4

REPORT INFORMATION
  Report Type: Spontaneous
  Country: FR (occurrence: FR)
  Receive Date: 20180517
  Receipt Date: 20181026
  Transmission Date: 20190204
  Serious: Yes (Other)
  Sender: FDA-Public Use
  Company Number: FR-MERCK KGAA-2047965

PATIENT
  Age: 54 Year
  Sex: Female

DRUGS (1)
  1. EUTHYROX [Suspect]
     Active Substance: LEVOTHYROXINE SODIUM
     Indication: HYPOTHYROIDISM
     Dates: start: 201702

REACTIONS (33)
  - Dizziness [None]
  - Stress [None]
  - Asthenia [None]
  - Social avoidant behaviour [None]
  - Anti-thyroid antibody positive [None]
  - Mood altered [None]
  - Dysphonia [None]
  - Amnesia [None]
  - Rash [None]
  - Irritability [None]
  - Paraesthesia [None]
  - Swelling [None]
  - Morbid thoughts [None]
  - Alopecia [None]
  - Mood swings [None]
  - Crying [None]
  - Suicidal ideation [None]
  - Visual impairment [None]
  - Depression [None]
  - Disturbance in attention [None]
  - Sleep disorder [None]
  - Weight increased [None]
  - Emotional distress [None]
  - Throat irritation [None]
  - Phobia [None]
  - Confusional state [None]
  - Somnolence [None]
  - Tinnitus [None]
  - Dysphagia [None]
  - Balance disorder [None]
  - Fatigue [None]
  - Muscle fatigue [None]
  - Nausea [None]

NARRATIVE: CASE EVENT DATE: 20171116
